FAERS Safety Report 5086743-8 (Version None)
Quarter: 2006Q3

REPORT INFORMATION
  Report Type: 
  Country: None (occurrence: None)
  Receive Date: 20060823
  Receipt Date: 20060811
  Transmission Date: 20061208
  Serious: Yes (Hospitalization)
  Sender: FDA-Public Use
  Company Number: US-ROCHE-459666

PATIENT
  Age: 54 Year
  Sex: Female
  Weight: 79.8 kg

DRUGS (3)
  1. BONIVA [Suspect]
     Indication: OSTEOPOROSIS
     Route: 048
     Dates: start: 20060809, end: 20060809
  2. SYNTHROID [Concomitant]
     Indication: HYPOTHYROIDISM
     Route: 048
  3. PREMPRO [Concomitant]
     Indication: MENOPAUSE
     Route: 048

REACTIONS (4)
  - DIARRHOEA [None]
  - INSOMNIA [None]
  - LOSS OF CONSCIOUSNESS [None]
  - PAIN IN EXTREMITY [None]
